FAERS Safety Report 7431779-2 (Version None)
Quarter: 2011Q2

REPORT INFORMATION
  Report Type: 
  Country: None (occurrence: None)
  Receive Date: 20110422
  Receipt Date: 20110407
  Transmission Date: 20111010
  Serious: Yes (Other)
  Sender: FDA-Public Use
  Company Number: HR-JNJFOC-20110404874

PATIENT
  Age: 24 Year
  Sex: Male

DRUGS (3)
  1. PHENYTOIN [Interacting]
     Indication: EPILEPSY
     Route: 048
  2. TOPAMAX [Suspect]
     Indication: EPILEPSY
     Dosage: 1 IN THE MORNING AND 1 IN THE EVENING
     Route: 048
  3. PHEMITON [Interacting]
     Indication: EPILEPSY
     Route: 048

REACTIONS (2)
  - GAMMA-GLUTAMYLTRANSFERASE INCREASED [None]
  - DRUG INTERACTION [None]
